FAERS Safety Report 16756187 (Version 1)
Quarter: 2019Q3

REPORT INFORMATION
  Report Type: Spontaneous
  Country: PL (occurrence: PL)
  Receive Date: 20190829
  Receipt Date: 20190829
  Transmission Date: 20191005
  Serious: Yes (Life-Threatening, Hospitalization, Other)
  Sender: FDA-Public Use
  Company Number: PL-CELGENEUS-POL-20190809665

PATIENT
  Age: 73 Year
  Sex: Female
  Weight: 79 kg

DRUGS (3)
  1. CLEMASTINE [Concomitant]
     Active Substance: CLEMASTINE
     Indication: BREAST CANCER FEMALE
     Route: 042
     Dates: start: 20160719, end: 20160719
  2. ABRAXANE [Suspect]
     Active Substance: PACLITAXEL
     Indication: BREAST CANCER FEMALE
     Route: 042
     Dates: start: 20160719, end: 20160719
  3. SOLVERTYL [Concomitant]
     Indication: BREAST CANCER FEMALE
     Route: 042
     Dates: start: 20160719, end: 20160719

REACTIONS (5)
  - Chest discomfort [Recovered/Resolved]
  - Ventricular extrasystoles [Recovered/Resolved]
  - Dyspnoea [Recovered/Resolved]
  - Extrasystoles [Recovered/Resolved]
  - Troponin increased [Recovered/Resolved]

NARRATIVE: CASE EVENT DATE: 20160719
